FAERS Safety Report 9494376 (Version 2)
Quarter: 2013Q3

REPORT INFORMATION
  Report Type: Spontaneous
  Country: US (occurrence: US)
  Receive Date: 20130903
  Receipt Date: 20130912
  Transmission Date: 20140515
  Serious: No
  Sender: FDA-Public Use
  Company Number: US-JNJFOC-20130813828

PATIENT
  Age: 32 Year
  Sex: Female
  Weight: 45.36 kg

DRUGS (6)
  1. INVEGA SUSTENNA [Suspect]
     Indication: BIPOLAR I DISORDER
     Route: 030
     Dates: start: 20130821
  2. INVEGA SUSTENNA [Suspect]
     Indication: SCHIZOPHRENIA
     Route: 030
     Dates: start: 20130821
  3. HALDOL DECANOATE [Suspect]
     Indication: PRODUCT USED FOR UNKNOWN INDICATION
     Route: 030
  4. TRAZODONE [Concomitant]
     Dosage: BED TIME
  5. HALDOL [Concomitant]
     Route: 048
  6. COGENTIN [Concomitant]
     Route: 030

REACTIONS (2)
  - Muscle spasms [Unknown]
  - Contusion [Unknown]
